FAERS Safety Report 14046677 (Version 1)
Quarter: 2017Q4

REPORT INFORMATION
  Report Type: Spontaneous
  Country: US (occurrence: None)
  Receive Date: 20171004
  Receipt Date: 20171004
  Transmission Date: 20180321
  Serious: Yes (Disabling, Other)
  Sender: FDA-Public Use
  Company Number: None

PATIENT
  Age: 59 Year
  Sex: Female
  Weight: 37.2 kg

DRUGS (6)
  1. METRONIDAZOLE 500MG TABLETS [Suspect]
     Active Substance: METRONIDAZOLE
     Indication: GASTROINTESTINAL BACTERIAL OVERGROWTH
     Dosage: 1 PILL 3 TIMES A DAY MOUTH
     Route: 048
     Dates: start: 20170816, end: 20170911
  2. FLAGYL [Concomitant]
     Active Substance: METRONIDAZOLE\METRONIDAZOLE HYDROCHLORIDE
  3. NYSTATIN. [Concomitant]
     Active Substance: NYSTATIN
  4. TUMS [Concomitant]
     Active Substance: CALCIUM CARBONATE
  5. TYLENOL [Concomitant]
     Active Substance: ACETAMINOPHEN
  6. MYLANTA [Concomitant]
     Active Substance: ALUMINUM HYDROXIDE\DIMETHICONE\MAGNESIUM HYDROXIDE

REACTIONS (10)
  - Dyspepsia [None]
  - Decreased appetite [None]
  - Abdominal pain upper [None]
  - Nausea [None]
  - Dry mouth [None]
  - Dizziness [None]
  - Dysgeusia [None]
  - Fatigue [None]
  - Tinnitus [None]
  - Candida infection [None]

NARRATIVE: CASE EVENT DATE: 20170816
